FAERS Safety Report 9550305 (Version 5)
Quarter: 2016Q1

REPORT INFORMATION
  Report Type: Report from Study
  Country: US (occurrence: US)
  Receive Date: 20130924
  Receipt Date: 20160129
  Transmission Date: 20160526
  Serious: Yes (Other)
  Sender: FDA-Public Use
  Company Number: US-SANOFI-AVENTIS-2013SA085137

PATIENT
  Age: 68 Year
  Sex: Female
  Weight: 61.23 kg

DRUGS (11)
  1. ASPIRIN. [Concomitant]
     Active Substance: ASPIRIN
  2. CENTRUM SILVER [Concomitant]
     Active Substance: MINERALS\VITAMINS
  3. PREVIDENT [Concomitant]
     Active Substance: SODIUM FLUORIDE
  4. BACLOFEN. [Concomitant]
     Active Substance: BACLOFEN
  5. ANALGESICS [Concomitant]
     Active Substance: UNSPECIFIED INGREDIENT
  6. ECOTRIN [Concomitant]
     Active Substance: ASPIRIN
  7. ALL OTHER THERAPEUTIC PRODUCTS [Concomitant]
     Active Substance: UNSPECIFIED INGREDIENT
  8. AUBAGIO [Suspect]
     Active Substance: TERIFLUNOMIDE
     Indication: MULTIPLE SCLEROSIS
     Route: 048
     Dates: start: 20130501
  9. CALTRATE [Concomitant]
     Active Substance: CALCIUM CARBONATE
  10. ALL OTHER THERAPEUTIC PRODUCTS [Concomitant]
     Active Substance: UNSPECIFIED INGREDIENT
  11. AUBAGIO [Suspect]
     Active Substance: TERIFLUNOMIDE
     Indication: MULTIPLE SCLEROSIS
     Route: 048
     Dates: start: 20130501

REACTIONS (5)
  - Hair texture abnormal [Recovering/Resolving]
  - Walking aid user [Not Recovered/Not Resolved]
  - Blood pressure increased [Unknown]
  - Orthosis user [Not Recovered/Not Resolved]
  - Alopecia [Recovering/Resolving]

NARRATIVE: CASE EVENT DATE: 201305
